FAERS Safety Report 15690072 (Version 1)
Quarter: 2018Q4

REPORT INFORMATION
  Report Type: Spontaneous
  Country: CH (occurrence: CH)
  Receive Date: 20181205
  Receipt Date: 20181205
  Transmission Date: 20190205
  Serious: Yes (Death, Hospitalization)
  Sender: FDA-Public Use
  Company Number: CH-BAYER-2018-219978

PATIENT
  Age: 76 Year
  Sex: Male

DRUGS (14)
  1. PLAVIX [Suspect]
     Active Substance: CLOPIDOGREL BISULFATE
     Dosage: 75 MG, OM
     Dates: end: 20181113
  2. MIRCERA [Concomitant]
     Active Substance: METHOXY POLYETHYLENE GLYCOL-EPOETIN BETA
     Dosage: 200 ?G, Q1MON
  3. PRAVASTATIN. [Concomitant]
     Active Substance: PRAVASTATIN
     Dosage: 20 MG, QD
  4. DILATREND [Concomitant]
     Active Substance: CARVEDILOL
     Dosage: 12.5 MG, OM
  5. SEROQUEL [Concomitant]
     Active Substance: QUETIAPINE FUMARATE
     Dosage: 25 MG, BID
  6. DIALVIT [Concomitant]
     Dosage: 1 DF, OM
  7. PANPRAX [Concomitant]
     Active Substance: PANTOPRAZOLE SODIUM
     Dosage: 40 MG, OM
  8. TRIATEC [RAMIPRIL] [Concomitant]
     Dosage: DAILY DOSE 3.75 MG
  9. NEURONTIN [Concomitant]
     Active Substance: GABAPENTIN
     Dosage: 100 MG, OM
  10. ROCEPHIN [Concomitant]
     Active Substance: CEFTRIAXONE SODIUM
     Dosage: 1 DF, UNK
     Route: 042
     Dates: start: 20181107, end: 20181112
  11. MARCOUMAR [Suspect]
     Active Substance: PHENPROCOUMON
     Dosage: 1 DF, UNK, DEPENDING ON INTERNATIONAL NORMALISED RATIO
     Dates: end: 20181113
  12. LEXOTANIL [Concomitant]
     Active Substance: BROMAZEPAM
     Dosage: 0.75 MG, HS
  13. ASPIRIN CARDIO 100 MG [Suspect]
     Active Substance: ASPIRIN
     Dosage: 100 MG, OM
     Dates: end: 20181113
  14. TOREM [TORASEMIDE] [Concomitant]
     Dosage: 200 MG, OM

REACTIONS (1)
  - Cerebral haemorrhage [Fatal]

NARRATIVE: CASE EVENT DATE: 20181113
